FAERS Safety Report 16064675 (Version 1)
Quarter: 2019Q1

REPORT INFORMATION
  Report Type: Spontaneous
  Country: US (occurrence: US)
  Receive Date: 20190312
  Receipt Date: 20190312
  Transmission Date: 20190418
  Serious: No
  Sender: FDA-Public Use
  Company Number: US-JUBILANT CADISTA PHARMACEUTICALS-2018JUB00215

PATIENT
  Sex: Female

DRUGS (2)
  1. HYDROCHLOROTHIAZIDE. [Suspect]
     Active Substance: HYDROCHLOROTHIAZIDE
     Dosage: UNK
  2. ARMOUR THYROID (GENERIC) [Suspect]
     Active Substance: THYROID, PORCINE
     Dosage: UNK

REACTIONS (3)
  - Malaise [Unknown]
  - Fatigue [Unknown]
  - Arthralgia [Unknown]
